FAERS Safety Report 4469456-2 (Version None)
Quarter: 2004Q4

REPORT INFORMATION
  Report Type: 
  Country: None (occurrence: None)
  Receive Date: 20041005
  Receipt Date: 20040920
  Transmission Date: 20050328
  Serious: Yes (Hospitalization)
  Sender: FDA-Public Use
  Company Number: 200866

PATIENT
  Age: 51 Year
  Sex: Male

DRUGS (6)
  1. AVONEX [Suspect]
     Indication: MULTIPLE SCLEROSIS
     Dosage: 30 MCG QW IM
     Route: 030
     Dates: start: 20010904
  2. NEURONTIN [Concomitant]
  3. BACLOFEN [Concomitant]
  4. MULTI-VITAMINS [Concomitant]
  5. ALTACE [Concomitant]
  6. SOLU-MEDROL [Concomitant]

REACTIONS (5)
  - ATRIAL FIBRILLATION [None]
  - DRUG INEFFECTIVE [None]
  - HEART VALVE INSUFFICIENCY [None]
  - INFUSION RELATED REACTION [None]
  - PERICARDIAL EFFUSION [None]
